FAERS Safety Report 22053195 (Version 1)
Quarter: 2023Q1

REPORT INFORMATION
  Report Type: Spontaneous
  Country: US (occurrence: None)
  Receive Date: 20230301
  Receipt Date: 20230301
  Transmission Date: 20230418
  Serious: No
  Sender: FDA-Public Use
  Company Number: None

PATIENT
  Age: 83 Year
  Sex: Male
  Weight: 68.04 kg

DRUGS (13)
  1. CAPECITABINE [Suspect]
     Active Substance: CAPECITABINE
     Indication: Pancreatic carcinoma
     Dosage: OTHER FREQUENCY : 7DON7DOFF;?
     Route: 048
  2. AMLODIPINE [Concomitant]
     Active Substance: AMLODIPINE BESYLATE
  3. ASPIRIN [Concomitant]
  4. ELIQUIS [Concomitant]
  5. ESOMEPRAZOLE [Concomitant]
  6. GABAPENTIN [Concomitant]
  7. GEMCITABINE [Concomitant]
  8. KLOR-CON [Concomitant]
     Active Substance: POTASSIUM CHLORIDE
  9. LIDOCAINE-PRILOCAINE [Concomitant]
  10. MAGOX [Concomitant]
  11. NORCO [Concomitant]
  12. NOVOLIN NOS [Concomitant]
     Active Substance: INSULIN HUMAN
  13. WARFARIN [Concomitant]

REACTIONS (1)
  - Disease progression [None]
